FAERS Safety Report 8861985 (Version 3)
Quarter: 2013Q2

REPORT INFORMATION
  Report Type: Spontaneous
  Country: US (occurrence: US)
  Receive Date: 20121025
  Receipt Date: 20130530
  Transmission Date: 20140414
  Serious: Yes (Congenital Anomaly, Other)
  Sender: FDA-Public Use
  Company Number: US-PFIZER INC-2012263597

PATIENT
  Sex: Female

DRUGS (1)
  1. ZOLOFT [Suspect]
     Indication: DEPRESSION
     Dosage: UNK
     Route: 064
     Dates: start: 200409, end: 200506

REACTIONS (9)
  - Foetal exposure during pregnancy [Unknown]
  - Talipes [Unknown]
  - Congenital anomaly [Unknown]
  - Tic [Unknown]
  - Tic [Unknown]
  - Asthma [Unknown]
  - Bronchitis [Unknown]
  - Attention deficit/hyperactivity disorder [Unknown]
  - Premature baby [Unknown]
